FAERS Safety Report 17004956 (Version 2)
Quarter: 2019Q4

REPORT INFORMATION
  Report Type: Spontaneous
  Country: JP (occurrence: JP)
  Receive Date: 20191107
  Receipt Date: 20191115
  Transmission Date: 20200122
  Serious: Yes (Hospitalization, Other)
  Sender: FDA-Public Use
  Company Number: JP-ACTELION-A-CH2018-183550

PATIENT
  Age: 23 Year
  Sex: Female

DRUGS (11)
  1. BERAPROST NA [Concomitant]
     Active Substance: BERAPROST SODIUM
     Dosage: UNK UNK, PER MIN
  2. EPOPROSTENOL ACT [Suspect]
     Active Substance: EPOPROSTENOL
     Indication: PULMONARY ARTERIAL HYPERTENSION
     Dosage: 52 NG/KG, PER MIN
     Route: 042
     Dates: start: 20181206
  3. OPSUMIT [Suspect]
     Active Substance: MACITENTAN
     Indication: PULMONARY ARTERIAL HYPERTENSION
     Dosage: 5 MG, QD
     Route: 048
     Dates: start: 20180104, end: 20180105
  4. DOBUPUM [Concomitant]
     Active Substance: DOBUTAMINE HYDROCHLORIDE
  5. FEXOFENADINE [Concomitant]
     Active Substance: FEXOFENADINE HYDROCHLORIDE
  6. EPOPROSTENOL ACT [Suspect]
     Active Substance: EPOPROSTENOL
     Dosage: 0.5-2 NG/KG, PER MIN
     Route: 042
     Dates: start: 20180110
  7. OPSUMIT [Suspect]
     Active Substance: MACITENTAN
     Dosage: 10 MG, QD
     Route: 048
     Dates: start: 20180106
  8. ALLERMIST [Concomitant]
     Active Substance: FLUTICASONE FUROATE
  9. CEFAZOLINA [Concomitant]
     Active Substance: CEFAZOLIN SODIUM
  10. XYZAL [Concomitant]
     Active Substance: LEVOCETIRIZINE DIHYDROCHLORIDE
  11. FUROSEMIDE. [Concomitant]
     Active Substance: FUROSEMIDE

REACTIONS (16)
  - Hot flush [Recovered/Resolved]
  - Palpitations [Recovered/Resolved]
  - Blood thyroid stimulating hormone decreased [Recovered/Resolved]
  - Headache [Recovering/Resolving]
  - Pain in jaw [Recovering/Resolving]
  - Neutropenia [Unknown]
  - Thyroid stimulating immunoglobulin increased [Recovered/Resolved]
  - Hypothyroidism [Recovering/Resolving]
  - Tri-iodothyronine increased [Recovered/Resolved]
  - Pulmonary hypertension [Recovering/Resolving]
  - Platelet count decreased [Recovered/Resolved]
  - Thyroidectomy [Recovered/Resolved]
  - Cardiac failure [Recovering/Resolving]
  - Hyperthyroidism [Recovered/Resolved]
  - Thyroxine free increased [Recovered/Resolved]
  - Diarrhoea [Recovering/Resolving]

NARRATIVE: CASE EVENT DATE: 20180110
